FAERS Safety Report 8486456-6 (Version None)
Quarter: 2012Q3

REPORT INFORMATION
  Report Type: 
  Country: None (occurrence: None)
  Receive Date: 20120703
  Receipt Date: 20120626
  Transmission Date: 20120928
  Serious: Yes (Other)
  Sender: FDA-Public Use
  Company Number: US-PFIZER INC-2012144998

PATIENT
  Sex: Female

DRUGS (2)
  1. PRISTIQ [Suspect]
     Dosage: UNK
     Dates: start: 20120501
  2. ZITHROMAX [Interacting]
     Dosage: UNK

REACTIONS (4)
  - DRUG INTERACTION [None]
  - ANXIETY [None]
  - SINUSITIS [None]
  - TOOTH ABSCESS [None]
